FAERS Safety Report 10451196 (Version 1)
Quarter: 2014Q3

REPORT INFORMATION
  Report Type: Spontaneous
  Country: US (occurrence: US)
  Receive Date: 20140912
  Receipt Date: 20140912
  Transmission Date: 20150326
  Serious: No
  Sender: FDA-Public Use
  Company Number: US-GALDERMA-US14002559

PATIENT
  Sex: Female

DRUGS (6)
  1. IT COSMETICS COVER UP [Concomitant]
     Route: 061
  2. MIRVASO [Suspect]
     Active Substance: BRIMONIDINE TARTRATE
     Indication: ERYTHEMA
     Dosage: 0.33%
     Route: 061
  3. METROGEL (METRONIDAZOLE) GEL [Concomitant]
     Indication: ROSACEA
     Route: 061
  4. METROGEL (METRONIDAZOLE) GEL [Concomitant]
     Indication: ANTIBIOTIC PROPHYLAXIS
  5. IT COSMETICS SILK FINISHING POWDER [Concomitant]
     Route: 061
  6. IT COSMETICS CREAM FOUNDATION [Concomitant]
     Route: 061

REACTIONS (1)
  - Rash macular [Unknown]
